FAERS Safety Report 19948391 (Version 1)
Quarter: 2021Q4

REPORT INFORMATION
  Report Type: Spontaneous
  Country: US (occurrence: US)
  Receive Date: 20211013
  Receipt Date: 20211013
  Transmission Date: 20220303
  Serious: No
  Sender: FDA-Public Use
  Company Number: US-APOTEX-2021AP016990

PATIENT
  Age: 69 Year
  Sex: Female

DRUGS (6)
  1. ACYCLOVIR [Suspect]
     Active Substance: ACYCLOVIR
     Indication: Genital herpes
     Dosage: UNK UNK, T.I.W (DURATION 20-30 YEARS)
     Route: 065
  2. ACYCLOVIR [Suspect]
     Active Substance: ACYCLOVIR
     Indication: Prophylaxis
     Dosage: 3 TO 5 TIMES A DAY OR 1 CAPSULE EVERY 4 HOURS
     Route: 065
     Dates: end: 20210628
  3. ACYCLOVIR [Suspect]
     Active Substance: ACYCLOVIR
     Indication: Blister
  4. VITAMIN D NOS [Concomitant]
     Active Substance: VITAMIN D NOS
     Indication: Product used for unknown indication
     Dosage: 1 DOSAGE FORM, QD
     Route: 048
  5. BIOTIN [Concomitant]
     Active Substance: BIOTIN
     Indication: Supplementation therapy
     Dosage: 1 DOSAGE FORM, QD
     Route: 048
  6. D-MANNOSE [Concomitant]
     Indication: Prophylaxis urinary tract infection
     Dosage: 1 DOSAGE FORM, QD
     Route: 048

REACTIONS (8)
  - Feeling abnormal [Recovered/Resolved]
  - Incorrect dose administered [Unknown]
  - Walking disability [Recovered/Resolved]
  - Hyperhidrosis [Recovered/Resolved]
  - Fatigue [Not Recovered/Not Resolved]
  - Nausea [Recovered/Resolved]
  - Dizziness [Recovered/Resolved]
  - Insomnia [Unknown]

NARRATIVE: CASE EVENT DATE: 20210628
